FAERS Safety Report 15741019 (Version 1)
Quarter: 2018Q4

REPORT INFORMATION
  Report Type: Spontaneous
  Country: IT (occurrence: IT)
  Receive Date: 20181219
  Receipt Date: 20181219
  Transmission Date: 20190205
  Serious: Yes (Hospitalization, Other)
  Sender: FDA-Public Use
  Company Number: IT-SA-2018SA106263

PATIENT
  Age: 37 Year
  Sex: Male

DRUGS (2)
  1. CHLOROQUINE. [Suspect]
     Active Substance: CHLOROQUINE
     Indication: PLASMODIUM OVALE INFECTION
     Dosage: 10 MG/KG,UNK
     Route: 048
  2. CHLOROQUINE. [Suspect]
     Active Substance: CHLOROQUINE
     Dosage: 5 MG/KG,UNK
     Route: 048

REACTIONS (16)
  - Haemoptysis [Recovered/Resolved]
  - Acute respiratory distress syndrome [Recovered/Resolved]
  - Pathogen resistance [Recovered/Resolved]
  - Pyrexia [Recovered/Resolved]
  - Rales [Recovered/Resolved]
  - Respiratory rate increased [Recovered/Resolved]
  - Computerised tomogram thorax abnormal [Recovered/Resolved]
  - Oxygen saturation abnormal [Recovered/Resolved]
  - Cardiomegaly [Recovered/Resolved]
  - Plasmodium ovale infection [Recovered/Resolved]
  - Dyspnoea at rest [Recovered/Resolved]
  - Hypoxia [Recovered/Resolved]
  - Pleural effusion [Recovered/Resolved]
  - Drug ineffective [Unknown]
  - Condition aggravated [Recovered/Resolved]
  - Cough [Recovered/Resolved]
